FAERS Safety Report 7774795-3 (Version None)
Quarter: 2011Q3

REPORT INFORMATION
  Report Type: 
  Country: None (occurrence: None)
  Receive Date: 20110923
  Receipt Date: 20110921
  Transmission Date: 20111222
  Serious: Yes (Death)
  Sender: FDA-Public Use
  Company Number: KR-PFIZER INC-2011224787

PATIENT
  Age: 56 Year
  Sex: Male
  Weight: 62.5 kg

DRUGS (7)
  1. MAGNESIUM OXIDE [Concomitant]
     Indication: CONSTIPATION
     Dosage: UNK
     Dates: start: 20110525
  2. AMBROXOL [Concomitant]
     Indication: PRODUCTIVE COUGH
     Dosage: UNK
     Dates: start: 20110726
  3. LACTULOSE [Concomitant]
     Indication: CONSTIPATION
     Dosage: UNK
     Dates: start: 20110831
  4. FAMOTIDINE [Concomitant]
     Indication: PROPHYLAXIS
     Dosage: UNK
     Dates: start: 20110615
  5. OXYCODONE [Concomitant]
     Indication: PAIN
     Dosage: UNK
     Dates: start: 20110525
  6. CRIZOTINIB [Suspect]
     Indication: NON-SMALL CELL LUNG CANCER
     Dosage: 250 MG, 2X/DAY
     Route: 048
     Dates: start: 20110817
  7. CODEINE [Concomitant]
     Indication: COUGH
     Dosage: UNK
     Dates: start: 20110511

REACTIONS (1)
  - DEATH [None]
